FAERS Safety Report 12208017 (Version 1)
Quarter: 2016Q1

REPORT INFORMATION
  Report Type: Spontaneous
  Country: US (occurrence: US)
  Receive Date: 20160324
  Receipt Date: 20160324
  Transmission Date: 20160526
  Serious: Yes (Death, Hospitalization, Other)
  Sender: FDA-Public Use
  Company Number: US-JNJFOC-20160314253

PATIENT
  Sex: Male

DRUGS (1)
  1. XARELTO [Suspect]
     Active Substance: RIVAROXABAN
     Indication: DEEP VEIN THROMBOSIS
     Route: 048
     Dates: start: 20140402

REACTIONS (27)
  - Haemoptysis [Unknown]
  - Thrombosis [Fatal]
  - Sepsis [Fatal]
  - Peritonitis bacterial [Unknown]
  - Pulmonary embolism [Unknown]
  - Transient ischaemic attack [Unknown]
  - Hepatic haemorrhage [Unknown]
  - Abdominal abscess [Fatal]
  - Multiple organ dysfunction syndrome [Fatal]
  - Generalised oedema [Unknown]
  - Septic shock [Fatal]
  - Pancreatitis haemorrhagic [Fatal]
  - Fungaemia [Unknown]
  - Antiphospholipid syndrome [Fatal]
  - Pulmonary oedema [Unknown]
  - Hyponatraemia [Unknown]
  - Pneumonia [Unknown]
  - Internal haemorrhage [Unknown]
  - Respiratory failure [Unknown]
  - Ascites [Unknown]
  - Pleural effusion [Unknown]
  - Ecchymosis [Unknown]
  - Cerebrovascular accident [Unknown]
  - Leukopenia [Unknown]
  - Thrombocytopenia [Unknown]
  - Congestive cardiomyopathy [Fatal]
  - Adrenal haemorrhage [Unknown]

NARRATIVE: CASE EVENT DATE: 2014
